FAERS Safety Report 7308197-0 (Version None)
Quarter: 2011Q1

REPORT INFORMATION
  Report Type: 
  Country: None (occurrence: None)
  Receive Date: 20110223
  Receipt Date: 20110216
  Transmission Date: 20110831
  Serious: Yes (Death, Hospitalization)
  Sender: FDA-Public Use
  Company Number: GB-BRISTOL-MYERS SQUIBB COMPANY-15553167

PATIENT
  Age: 48 Year
  Sex: Female

DRUGS (5)
  1. AMPICILLIN [Suspect]
  2. CIMETIDINE [Concomitant]
  3. TYLENOL [Suspect]
     Indication: BACK PAIN
     Dosage: FOR 3 WEEKS
     Route: 048
  4. MEPERIDINE HCL [Suspect]
  5. DIAZEPAM [Suspect]

REACTIONS (5)
  - HEPATIC NECROSIS [None]
  - RENAL FAILURE [None]
  - METABOLIC ACIDOSIS [None]
  - TOXICITY TO VARIOUS AGENTS [None]
  - HYPOGLYCAEMIA [None]
